FAERS Safety Report 6257718-8 (Version None)
Quarter: 2009Q3

REPORT INFORMATION
  Report Type: 
  Country: None (occurrence: None)
  Receive Date: 20090706
  Receipt Date: 20090702
  Transmission Date: 20100115
  Serious: Yes (Life-Threatening, Hospitalization)
  Sender: FDA-Public Use
  Company Number: US-ASTRAZENECA-2009UW18484

PATIENT
  Age: 40 Year
  Sex: Male

DRUGS (2)
  1. CRESTOR [Suspect]
     Indication: HYPERLIPIDAEMIA
     Route: 048
     Dates: start: 20081201
  2. PRISTIQ [Suspect]
     Indication: ANXIETY
     Route: 048
     Dates: start: 20090605, end: 20090608

REACTIONS (1)
  - BLOOD PRESSURE INCREASED [None]
